FAERS Safety Report 6655255-X (Version None)
Quarter: 2010Q1

REPORT INFORMATION
  Report Type: 
  Country: None (occurrence: None)
  Receive Date: 20100329
  Receipt Date: 20100323
  Transmission Date: 20100710
  Serious: Yes (Other)
  Sender: FDA-Public Use
  Company Number: FR-BRISTOL-MYERS SQUIBB COMPANY-14965628

PATIENT
  Age: 40 Year
  Sex: Male

DRUGS (9)
  1. REYATAZ [Suspect]
     Indication: HIV TEST POSITIVE
     Dates: start: 20080214, end: 20090620
  2. SUSTIVA [Suspect]
     Dates: start: 20090630, end: 20100101
  3. TRUVADA [Suspect]
     Indication: HIV TEST POSITIVE
     Dates: start: 20080214, end: 20090921
  4. NORVIR [Suspect]
     Indication: HIV TEST POSITIVE
     Dates: start: 20080214, end: 20090620
  5. COMBIVIR [Concomitant]
  6. APRANAX [Concomitant]
     Indication: PAIN
     Dates: start: 20091101
  7. MYOLASTAN [Concomitant]
  8. MIOREL [Concomitant]
  9. CARNITINE, L- [Concomitant]

REACTIONS (2)
  - DRUG RESISTANCE [None]
  - OSTEONECROSIS [None]
